FAERS Safety Report 9265928 (Version 2)
Quarter: 2013Q3

REPORT INFORMATION
  Report Type: Spontaneous
  Country: US (occurrence: US)
  Receive Date: 20130501
  Receipt Date: 20130710
  Transmission Date: 20140515
  Serious: Yes (Other)
  Sender: FDA-Public Use
  Company Number: CHPA2013US007154

PATIENT
  Age: 85 Year
  Sex: Male

DRUGS (3)
  1. MAALOX ANTACID/ANTIGAS RS LIQ COOL MINT [Suspect]
     Indication: GASTRITIS
     Dosage: 2-4 TSP, PRN
     Route: 048
  2. MYLANTA                                 /AUS/ [Concomitant]
  3. TUMS [Concomitant]

REACTIONS (2)
  - Hypertension [Not Recovered/Not Resolved]
  - Off label use [Unknown]
